FAERS Safety Report 7774158-0 (Version None)
Quarter: 2011Q3

REPORT INFORMATION
  Report Type: 
  Country: None (occurrence: None)
  Receive Date: 20110921
  Receipt Date: 20110906
  Transmission Date: 20111222
  Serious: Yes (Hospitalization, Other)
  Sender: FDA-Public Use
  Company Number: 2011MA013065

PATIENT
  Age: 42 Year
  Sex: Female
  Weight: 87 kg

DRUGS (5)
  1. CITALOPRAM HYDROBROMIDE [Suspect]
     Dosage: PO
     Route: 048
  2. ASPIRIN [Suspect]
     Dosage: PO
     Route: 048
  3. LAMOTRIGINE [Suspect]
     Dosage: PO
     Route: 048
  4. DALTEPARIN (NO PREF. NAME) [Suspect]
     Indication: EMBOLISM
     Dosage: 212500 IU;X1;SC
     Route: 058
  5. PROMETHAZINE [Suspect]
     Dosage: 625 MG;X1;PO
     Route: 048

REACTIONS (13)
  - HAEMOGLOBIN DECREASED [None]
  - ABNORMAL CLOTTING FACTOR [None]
  - SUICIDE ATTEMPT [None]
  - BLOOD CREATINE PHOSPHOKINASE INCREASED [None]
  - SOMNOLENCE [None]
  - FIBRIN D DIMER INCREASED [None]
  - DRUG INTERACTION [None]
  - BLOOD LACTATE DEHYDROGENASE INCREASED [None]
  - INJECTION SITE HAEMORRHAGE [None]
  - ACTIVATED PARTIAL THROMBOPLASTIN TIME PROLONGED [None]
  - TOXICITY TO VARIOUS AGENTS [None]
  - INTERNATIONAL NORMALISED RATIO INCREASED [None]
  - BLOOD FIBRINOGEN INCREASED [None]
